FAERS Safety Report 6923855-5 (Version None)
Quarter: 2010Q3

REPORT INFORMATION
  Report Type: 
  Country: None (occurrence: None)
  Receive Date: 20100813
  Receipt Date: 20091026
  Transmission Date: 20110219
  Serious: Yes (Hospitalization)
  Sender: FDA-Public Use
  Company Number: US-BRISTOL-MYERS SQUIBB COMPANY-14833461

PATIENT
  Age: 21 Year
  Sex: Female

DRUGS (1)
  1. REYATAZ [Suspect]
     Indication: HIV INFECTION

REACTIONS (1)
  - NEPHROLITHIASIS [None]
